FAERS Safety Report 16994373 (Version 1)
Quarter: 2019Q4

REPORT INFORMATION
  Report Type: Spontaneous
  Country: CN (occurrence: CN)
  Receive Date: 20191105
  Receipt Date: 20191105
  Transmission Date: 20200122
  Serious: Yes (Other)
  Sender: FDA-Public Use
  Company Number: CN-FERRINGPH-2019FE07087

PATIENT
  Age: 2 Year
  Sex: Female
  Weight: 9 kg

DRUGS (2)
  1. MINIRIN [Suspect]
     Active Substance: DESMOPRESSIN ACETATE
     Indication: DIABETES INSIPIDUS
     Dosage: 0.025 MG
     Route: 048
     Dates: start: 20191010, end: 20191012
  2. MINIRIN [Suspect]
     Active Substance: DESMOPRESSIN ACETATE
     Dosage: 0.0125 MG
     Route: 065
     Dates: start: 20191014

REACTIONS (8)
  - Mydriasis [Recovering/Resolving]
  - Musculoskeletal discomfort [Recovering/Resolving]
  - Delayed light adaptation [Recovering/Resolving]
  - Seizure [Recovering/Resolving]
  - Brain oedema [Recovering/Resolving]
  - Ill-defined disorder [Recovering/Resolving]
  - Sodium retention [Recovering/Resolving]
  - Fluid retention [Recovering/Resolving]

NARRATIVE: CASE EVENT DATE: 20191012
